FAERS Safety Report 6961217-5 (Version None)
Quarter: 2010Q3

REPORT INFORMATION
  Report Type: 
  Country: None (occurrence: None)
  Receive Date: 20100901
  Receipt Date: 20100823
  Transmission Date: 20110219
  Serious: Yes (Other)
  Sender: FDA-Public Use
  Company Number: B0669758A

PATIENT
  Age: 31 Year
  Sex: Female

DRUGS (1)
  1. ALLI [Suspect]
     Route: 065
     Dates: start: 20100707, end: 20100801

REACTIONS (1)
  - HAEMATOCHEZIA [None]
